FAERS Safety Report 7010157-4 (Version None)
Quarter: 2010Q3

REPORT INFORMATION
  Report Type: 
  Country: None (occurrence: None)
  Receive Date: 20100923
  Receipt Date: 20100916
  Transmission Date: 20110219
  Serious: Yes (Other)
  Sender: FDA-Public Use
  Company Number: JP-PFIZER INC-2010117570

PATIENT
  Age: 59 Year
  Sex: Male

DRUGS (7)
  1. CHAMPIX [Suspect]
     Dosage: 0.5 MG, 1X/DAY
     Route: 048
     Dates: start: 20100910, end: 20100912
  2. CHAMPIX [Suspect]
     Dosage: 0.5 MG, 2X/DAY
     Route: 048
     Dates: start: 20100913, end: 20100913
  3. ALOSENN [Concomitant]
     Dosage: UNK
     Route: 048
  4. FAMOTIDINE [Concomitant]
     Dosage: UNK
     Route: 048
  5. ALLELOCK [Concomitant]
     Dosage: UNK
     Route: 048
  6. DEPAS [Concomitant]
     Dosage: UNK
     Route: 048
  7. IBUPROFEN [Concomitant]
     Dosage: UNK
     Route: 048

REACTIONS (6)
  - ABDOMINAL DISTENSION [None]
  - ABDOMINAL PAIN LOWER [None]
  - DIARRHOEA [None]
  - GASTROINTESTINAL MOTILITY DISORDER [None]
  - URINARY RETENTION [None]
  - URINE OUTPUT DECREASED [None]
